FAERS Safety Report 13021038 (Version 1)
Quarter: 2016Q4

REPORT INFORMATION
  Report Type: Spontaneous
  Country: AR (occurrence: AR)
  Receive Date: 20161213
  Receipt Date: 20161213
  Transmission Date: 20170207
  Serious: Yes (Other)
  Sender: FDA-Public Use
  Company Number: AR-BRISTOL-MYERS SQUIBB COMPANY-BMS-2016-103988

PATIENT
  Sex: Female

DRUGS (2)
  1. METHOTREXATE. [Concomitant]
     Active Substance: METHOTREXATE
     Indication: PRODUCT USED FOR UNKNOWN INDICATION
     Dosage: 10 MG, QWK
     Route: 065
  2. ORENCIA [Suspect]
     Active Substance: ABATACEPT
     Indication: RHEUMATOID ARTHRITIS
     Dosage: 3 VIALS
     Route: 042
     Dates: start: 2008

REACTIONS (9)
  - Gastritis [Unknown]
  - Gastrointestinal inflammation [Unknown]
  - Vasculitis [Unknown]
  - Sjogren^s syndrome [Unknown]
  - Glaucoma [Unknown]
  - Cardiac valve disease [Unknown]
  - Diarrhoea [Unknown]
  - Pulmonary fibrosis [Unknown]
  - Pericardial effusion [Unknown]
